FAERS Safety Report 24743098 (Version 2)
Quarter: 2024Q4

REPORT INFORMATION
  Report Type: Report from Study
  Country: US (occurrence: US)
  Receive Date: 20241217
  Receipt Date: 20241224
  Transmission Date: 20250114
  Serious: Yes (Hospitalization)
  Sender: ROCHE
  Company Number: US-ROCHE-10000158415

PATIENT
  Age: 52 Year
  Sex: Male
  Weight: 80.74 kg

DRUGS (3)
  1. XOLAIR [Suspect]
     Active Substance: OMALIZUMAB
     Indication: Urticaria
     Dosage: STRENGTH: 150MG/1ML
     Route: 058
     Dates: start: 201910
  2. XOLAIR [Suspect]
     Active Substance: OMALIZUMAB
  3. GABAPENTIN [Concomitant]
     Active Substance: GABAPENTIN
     Dosage: 1 WEEK

REACTIONS (15)
  - Back pain [Not Recovered/Not Resolved]
  - Skin disorder [Unknown]
  - Gastritis [Not Recovered/Not Resolved]
  - Helicobacter infection [Recovered/Resolved]
  - Urticaria [Recovered/Resolved]
  - Nasopharyngitis [Recovered/Resolved]
  - Pruritus [Recovered/Resolved]
  - Blood disorder [Recovered/Resolved]
  - Gallbladder disorder [Not Recovered/Not Resolved]
  - Chondritis [Not Recovered/Not Resolved]
  - Intestinal metaplasia [Not Recovered/Not Resolved]
  - Burning sensation [Not Recovered/Not Resolved]
  - Peripheral coldness [Recovering/Resolving]
  - Fatigue [Recovered/Resolved]
  - Malaise [Unknown]

NARRATIVE: CASE EVENT DATE: 20240301
